FAERS Safety Report 8596211-4 (Version None)
Quarter: 2012Q3

REPORT INFORMATION
  Report Type: 
  Country: None (occurrence: None)
  Receive Date: 20120815
  Receipt Date: 20120802
  Transmission Date: 20120928
  Serious: Yes (Other)
  Sender: FDA-Public Use
  Company Number: JP-GLAXOSMITHKLINE-B0820545A

PATIENT
  Sex: Female

DRUGS (6)
  1. LAMICTAL [Suspect]
     Dosage: 50MG PER DAY
     Route: 048
     Dates: start: 20120725, end: 20120730
  2. BROTIZOLAM [Concomitant]
     Route: 048
  3. HIRNAMIN [Concomitant]
     Route: 065
  4. LAMICTAL [Suspect]
     Indication: EPILEPSY
     Dosage: 25MG PER DAY
     Route: 048
     Dates: start: 20120718, end: 20120724
  5. LITHIUM CARBONATE [Concomitant]
     Route: 048
  6. DIAZEPAM [Concomitant]
     Route: 065

REACTIONS (5)
  - PYREXIA [None]
  - GENERALISED ERYTHEMA [None]
  - VIRAL INFECTION [None]
  - RASH [None]
  - DRUG ERUPTION [None]
